FAERS Safety Report 9922331 (Version 1)
Quarter: 2014Q1

REPORT INFORMATION
  Report Type: Report from Study
  Country: US (occurrence: US)
  Receive Date: 20140225
  Receipt Date: 20140225
  Transmission Date: 20141002
  Serious: Yes (Death, Hospitalization, Other)
  Sender: FDA-Public Use
  Company Number: US-TEVA-463936USA

PATIENT
  Age: 71 Year
  Sex: Female

DRUGS (1)
  1. COPAXONE [Suspect]
     Indication: MULTIPLE SCLEROSIS
     Dates: start: 20131204, end: 201401

REACTIONS (10)
  - Death [Fatal]
  - Multiple sclerosis relapse [Unknown]
  - Chest pain [Unknown]
  - Dyspnoea [Unknown]
  - Anxiety [Unknown]
  - Gastroenteritis [Unknown]
  - Liver disorder [Unknown]
  - Renal disorder [Unknown]
  - Movement disorder [Unknown]
  - Musculoskeletal stiffness [Unknown]
